FAERS Safety Report 5123102-3 (Version None)
Quarter: 2006Q4

REPORT INFORMATION
  Report Type: 
  Country: None (occurrence: None)
  Receive Date: 20061004
  Receipt Date: 20061004
  Transmission Date: 20070319
  Serious: Yes (Death)
  Sender: FDA-Public Use
  Company Number: None

PATIENT
  Age: 71 Year
  Sex: Male
  Weight: 53 kg

DRUGS (3)
  1. MIDAZOLAM HCL [Suspect]
     Indication: SEDATION
     Dosage: 2 MG X1
     Dates: start: 20060607
  2. FENTANYL [Suspect]
     Indication: PAIN
     Dosage: 50 MCG TRANSDERMAL Q 72 H
     Route: 062
     Dates: start: 20060606
  3. MEPERIDINE HCL [Suspect]
     Indication: SEDATION
     Dosage: UNKNOWN
     Route: 065
     Dates: start: 20060607

REACTIONS (4)
  - APNOEA [None]
  - PROCEDURAL COMPLICATION [None]
  - REFUSAL OF TREATMENT BY RELATIVE [None]
  - RESPIRATORY ARREST [None]
